FAERS Safety Report 10580841 (Version 1)
Quarter: 2014Q4

REPORT INFORMATION
  Report Type: Spontaneous
  Country: US (occurrence: None)
  Receive Date: 20141110
  Receipt Date: 20141110
  Transmission Date: 20150529
  Serious: Yes (Death, Other)
  Sender: FDA-Public Use
  Company Number: 2014-20687

PATIENT
  Age: 79 Year
  Sex: Male

DRUGS (4)
  1. ATENOLOL (ATENOLOL) [Concomitant]
     Active Substance: ATENOLOL
  2. LISINOPRIL. [Concomitant]
     Active Substance: LISINOPRIL
  3. EYLEA [Suspect]
     Active Substance: AFLIBERCEPT
     Indication: NEOVASCULAR AGE-RELATED MACULAR DEGENERATION
     Route: 031
     Dates: start: 20140924, end: 20140924
  4. ATORVASTATIN (ATORVASTATIN) [Suspect]
     Active Substance: ATORVASTATIN

REACTIONS (1)
  - Death [None]

NARRATIVE: CASE EVENT DATE: 20141101
